FAERS Safety Report 8310073-1 (Version None)
Quarter: 2012Q2

REPORT INFORMATION
  Report Type: 
  Country: None (occurrence: None)
  Receive Date: 20120423
  Receipt Date: 20120413
  Transmission Date: 20120825
  Serious: Yes (Death)
  Sender: FDA-Public Use
  Company Number: UTC-016173

PATIENT
  Age: 37 Year
  Sex: Female
  Weight: 68.2 kg

DRUGS (2)
  1. REVATIO [Concomitant]
  2. REMODULIN [Suspect]
     Indication: PULMONARY HYPERTENSION
     Dosage: 90.72 UG/KG (0.063 UG/KG, 1 IN 1 MIN), SUBCUTANEOUS
     Route: 058
     Dates: start: 20080714

REACTIONS (2)
  - POLYMYOSITIS [None]
  - INTERSTITIAL LUNG DISEASE [None]
